FAERS Safety Report 18973024 (Version 1)
Quarter: 2021Q1

REPORT INFORMATION
  Report Type: Spontaneous
  Country: US (occurrence: US)
  Receive Date: 20210305
  Receipt Date: 20210305
  Transmission Date: 20210420
  Serious: Yes (Other)
  Sender: FDA-Public Use
  Company Number: None

PATIENT
  Age: 92 Year
  Sex: Male
  Weight: 99 kg

DRUGS (14)
  1. POTASSIUM CHLORIDE 20MEQ [Concomitant]
     Active Substance: POTASSIUM CHLORIDE
  2. ANAGRELIDE. [Suspect]
     Active Substance: ANAGRELIDE HYDROCHLORIDE
     Indication: ESSENTIAL THROMBOCYTHAEMIA
     Route: 048
     Dates: start: 20191122, end: 20210305
  3. COLESEVELAM 625MG [Concomitant]
  4. FUROSEMIDE 20MG [Concomitant]
     Active Substance: FUROSEMIDE
  5. ASPIRIN 81MG [Concomitant]
     Active Substance: ASPIRIN
  6. CALCIUM CARBONATE?VIT D. 600?200MG [Concomitant]
  7. VITAMIN B12 1000MCG [Concomitant]
  8. CARDURA 1MG [Concomitant]
  9. HYDROXYUREA 500MG [Concomitant]
     Active Substance: HYDROXYUREA
  10. GLYCOLAX [Concomitant]
     Active Substance: POLYETHYLENE GLYCOL 3350
  11. TAMSULOSIN 0.4MG [Concomitant]
     Active Substance: TAMSULOSIN
  12. LEXAPRO [Concomitant]
     Active Substance: ESCITALOPRAM OXALATE
  13. HYDROXYZINE [Concomitant]
     Active Substance: HYDROXYZINE HYDROCHLORIDE
  14. LISINOPRIL 10MG [Concomitant]
     Active Substance: LISINOPRIL

REACTIONS (1)
  - Hospice care [None]

NARRATIVE: CASE EVENT DATE: 20210305
